FAERS Safety Report 7596977-6 (Version None)
Quarter: 2011Q3

REPORT INFORMATION
  Report Type: 
  Country: None (occurrence: None)
  Receive Date: 20110708
  Receipt Date: 20110609
  Transmission Date: 20111222
  Serious: Yes (Other)
  Sender: FDA-Public Use
  Company Number: IT-BRISTOL-MYERS SQUIBB COMPANY-15882392

PATIENT
  Age: 70 Year
  Sex: Female

DRUGS (7)
  1. GLUCOPHAGE [Suspect]
     Indication: TYPE 2 DIABETES MELLITUS
     Route: 048
     Dates: start: 19920101, end: 20101220
  2. CANDESARTAN CILEXETIL AND HYDROCHLOROTHIAZIDE [Suspect]
     Indication: HYPERTENSION
     Route: 048
     Dates: start: 20100601, end: 20101213
  3. REPAGLINIDE [Concomitant]
  4. MODURETIC 5-50 [Suspect]
     Indication: HYPERTENSION
     Dosage: FORMULATION:5MG + 50MG
     Route: 048
     Dates: start: 20100601, end: 20101213
  5. CARDURA [Concomitant]
  6. ADALAT [Concomitant]
     Dosage: ADALAT CRONO
  7. FENOFIBRATE [Concomitant]
     Dosage: FULCRO

REACTIONS (3)
  - METABOLIC ACIDOSIS [None]
  - HYPERKALAEMIA [None]
  - RENAL FAILURE [None]
